FAERS Safety Report 20026593 (Version 1)
Quarter: 2021Q4

REPORT INFORMATION
  Report Type: Other
  Country: None (occurrence: US)
  Receive Date: 20211102
  Receipt Date: 20211102
  Transmission Date: 20220303
  Serious: Yes (Other)
  Sender: FDA-Public Use
  Company Number: N/A. No World Wide Unique Number was assigned as the paper report was not accepted.

PATIENT
  Age: 10 Year
  Sex: Female
  Weight: 32.273 kg

DRUGS (1)
  1. KIDS COUGH AND CHEST CONGESTION [Suspect]
     Active Substance: DEXTROMETHORPHAN HYDROBROMIDE\GUAIFENESIN
     Indication: Upper respiratory tract infection
     Route: 048
     Dates: start: 20210926, end: 20210929

REACTIONS (5)
  - Neurological symptom [Recovered/Resolved]
  - Eye disorder [Recovered/Resolved]
  - Oculogyric crisis [Recovered/Resolved]
  - Diplopia [Recovered/Resolved]
  - Eye pain [Recovered/Resolved]

NARRATIVE: CASE EVENT DATE: 20210929
